FAERS Safety Report 9236743 (Version 2)
Quarter: 2013Q2

REPORT INFORMATION
  Report Type: Spontaneous
  Country: JP (occurrence: JP)
  Receive Date: 20130417
  Receipt Date: 20130501
  Transmission Date: 20140414
  Serious: Yes (Life-Threatening, Hospitalization)
  Sender: FDA-Public Use
  Company Number: JP-GLAXOSMITHKLINE-B0883297A

PATIENT
  Age: 78 Year
  Sex: Female

DRUGS (3)
  1. VALTREX [Suspect]
     Indication: HERPES ZOSTER
     Dosage: 1000MG THREE TIMES PER DAY
     Route: 048
     Dates: start: 20130401, end: 20130405
  2. LYRICA [Concomitant]
     Route: 048
  3. UNKNOWN DRUG [Concomitant]
     Indication: HERPES ZOSTER
     Route: 061

REACTIONS (12)
  - Renal failure [Unknown]
  - Altered state of consciousness [Recovered/Resolved]
  - Somnolence [Unknown]
  - Depressed level of consciousness [Recovered/Resolved]
  - Unresponsive to stimuli [Unknown]
  - Azotaemia [Unknown]
  - Salivary hypersecretion [Unknown]
  - Rhinorrhoea [Unknown]
  - Respiratory arrest [Unknown]
  - Dyspnoea [Unknown]
  - Pulseless electrical activity [Unknown]
  - Oxygen saturation decreased [Unknown]
